FAERS Safety Report 13414531 (Version 1)
Quarter: 2017Q2

REPORT INFORMATION
  Report Type: Spontaneous
  Country: JP (occurrence: JP)
  Receive Date: 20170406
  Receipt Date: 20170406
  Transmission Date: 20170830
  Serious: Yes (Life-Threatening)
  Sender: FDA-Public Use
  Company Number: JP-ASTRAZENECA-2017SE35131

PATIENT

DRUGS (2)
  1. MEROPEN [Suspect]
     Active Substance: MEROPENEM
     Indication: INFECTION
     Route: 042
  2. CUBICIN [Suspect]
     Active Substance: DAPTOMYCIN
     Indication: INFECTION
     Dosage: 350.0MG UNKNOWN
     Route: 041

REACTIONS (1)
  - Blood sodium increased [Recovered/Resolved]
